FAERS Safety Report 9236600 (Version 3)
Quarter: 2014Q1

REPORT INFORMATION
  Report Type: Report from Study
  Country: CN (occurrence: CN)
  Receive Date: 20130417
  Receipt Date: 20140129
  Transmission Date: 20141002
  Serious: Yes (Other)
  Sender: FDA-Public Use
  Company Number: CN-ROCHE-1214380

PATIENT
  Sex: 0

DRUGS (3)
  1. CAPECITABINE [Suspect]
     Indication: RECTAL CANCER
     Route: 065
  2. OXALIPLATIN [Suspect]
     Indication: RECTAL CANCER
     Dosage: DAY 1-14
     Route: 065
  3. OXALIPLATIN [Suspect]
     Dosage: MODIFIED XELOX REGIMEN
     Route: 065

REACTIONS (11)
  - Diarrhoea [Unknown]
  - Leukopenia [Unknown]
  - Radiation skin injury [Unknown]
  - Proctitis [Unknown]
  - Thrombocytopenia [Unknown]
  - Anaemia [Unknown]
  - Nausea [Unknown]
  - Vomiting [Unknown]
  - Palmar-plantar erythrodysaesthesia syndrome [Unknown]
  - Neuropathy peripheral [Unknown]
  - Urinary tract disorder [Unknown]
